FAERS Safety Report 5262512-0 (Version None)
Quarter: 2007Q1

REPORT INFORMATION
  Report Type: 
  Country: None (occurrence: None)
  Receive Date: 20070312
  Receipt Date: 20070228
  Transmission Date: 20070707
  Serious: No
  Sender: FDA-Public Use
  Company Number: 2006UW07958

PATIENT
  Age: 631 Month
  Sex: Male
  Weight: 102.3 kg

DRUGS (3)
  1. SEROQUEL [Suspect]
     Indication: SLEEP DISORDER
     Route: 048
     Dates: start: 20060201
  2. RISPERDAL [Concomitant]
     Dates: start: 19991101
  3. MARIJUANA [Concomitant]

REACTIONS (2)
  - DIABETES MELLITUS [None]
  - INJURY [None]
